FAERS Safety Report 16234526 (Version 1)
Quarter: 2019Q2

REPORT INFORMATION
  Report Type: Spontaneous
  Country: ES (occurrence: ES)
  Receive Date: 20190424
  Receipt Date: 20190424
  Transmission Date: 20190711
  Serious: Yes (Hospitalization, Other)
  Sender: FDA-Public Use
  Company Number: ES-MYLANLABS-2019M1037066

PATIENT
  Age: 67 Year
  Sex: Male

DRUGS (5)
  1. IBUPROFENO [Concomitant]
     Active Substance: IBUPROFEN
     Dosage: HISTORIA ACTUAL DE
     Route: 048
  2. CAPOTEN [Concomitant]
     Active Substance: CAPTOPRIL
     Dosage: 25MG/ 12H
     Route: 048
  3. ADIRO [Concomitant]
     Active Substance: ASPIRIN
     Dosage: 0-1-0. EN HISTORIA CL?NICA
     Route: 048
  4. AZITHROMYCIN ANHYDROUS. [Suspect]
     Active Substance: AZITHROMYCIN ANHYDROUS
     Indication: NASAL OBSTRUCTION
     Dosage: AZITRO/24H 6D
     Route: 048
     Dates: start: 20180910, end: 20180911
  5. OMEPRAZOL                          /00661201/ [Concomitant]
     Active Substance: OMEPRAZOLE

REACTIONS (4)
  - Hypertensive crisis [Recovered/Resolved]
  - Anaphylactic reaction [Recovered/Resolved]
  - Chest pain [Recovered/Resolved]
  - Bradycardia [Recovered/Resolved]

NARRATIVE: CASE EVENT DATE: 20180910
